FAERS Safety Report 24183086 (Version 1)
Quarter: 2024Q3

REPORT INFORMATION
  Report Type: Spontaneous
  Country: ES (occurrence: ES)
  Receive Date: 20240807
  Receipt Date: 20240807
  Transmission Date: 20241017
  Serious: Yes (Other)
  Sender: BAUSCH AND LOMB
  Company Number: None

PATIENT
  Age: 78 Year
  Sex: Male
  Weight: 74 kg

DRUGS (2)
  1. HYDROCORTISONE [Interacting]
     Active Substance: HYDROCORTISONE\HYDROCORTISONE ACETATE
     Indication: Acute respiratory failure
     Route: 042
     Dates: start: 20240714, end: 20240714
  2. METHYLPREDNISOLONE [Interacting]
     Active Substance: METHYLPREDNISOLONE
     Indication: Acute respiratory failure
     Route: 042
     Dates: start: 20240714, end: 20240716

REACTIONS (3)
  - Condition aggravated [Recovered/Resolved]
  - Hyperglycaemia [Recovered/Resolved]
  - Type 2 diabetes mellitus [Recovered/Resolved]

NARRATIVE: CASE EVENT DATE: 20240715
